FAERS Safety Report 6888756-X (Version None)
Quarter: 2010Q3

REPORT INFORMATION
  Report Type: 
  Country: None (occurrence: None)
  Receive Date: 20100730
  Receipt Date: 20071116
  Transmission Date: 20110219
  Serious: No
  Sender: FDA-Public Use
  Company Number: US-PFIZER INC-2007094208

PATIENT
  Sex: Female
  Weight: 48.6 kg

DRUGS (8)
  1. LIPITOR [Suspect]
     Indication: BLOOD CHOLESTEROL INCREASED
     Route: 048
  2. MONTELUKAST SODIUM [Concomitant]
  3. ADVAIR DISKUS 100/50 [Concomitant]
  4. PREVACID [Concomitant]
  5. LISINOPRIL [Concomitant]
  6. PLAVIX [Concomitant]
  7. VITAMINS [Concomitant]
  8. CALCIUM [Concomitant]

REACTIONS (1)
  - BLOOD CHOLESTEROL INCREASED [None]
